FAERS Safety Report 21493376 (Version 1)
Quarter: 2022Q4

REPORT INFORMATION
  Report Type: Spontaneous
  Country: CN (occurrence: CN)
  Receive Date: 20221021
  Receipt Date: 20221021
  Transmission Date: 20230113
  Serious: Yes (Hospitalization)
  Sender: FDA-Public Use
  Company Number: CN-Eisai Medical Research-EC-2022-125820

PATIENT
  Age: 80 Year
  Sex: Male
  Weight: 45 kg

DRUGS (2)
  1. LENVIMA [Suspect]
     Active Substance: LENVATINIB
     Indication: Hepatic cancer
     Route: 048
     Dates: start: 20220624
  2. CAMRELIZUMAB [Suspect]
     Active Substance: CAMRELIZUMAB
     Indication: Hepatic cancer
     Route: 041
     Dates: start: 20220627, end: 20220808

REACTIONS (3)
  - Memory impairment [Unknown]
  - Asthenia [Recovering/Resolving]
  - Decreased appetite [Unknown]

NARRATIVE: CASE EVENT DATE: 20220926
